FAERS Safety Report 10650246 (Version 1)
Quarter: 2014Q4

REPORT INFORMATION
  Report Type: Spontaneous
  Country: US (occurrence: US)
  Receive Date: 20141212
  Receipt Date: 20141212
  Transmission Date: 20150529
  Serious: Yes (Hospitalization, Other)
  Sender: FDA-Public Use
  Company Number: US-GLAXOSMITHKLINE-US2014GSK034818

PATIENT
  Sex: Male

DRUGS (1)
  1. AVANDIA [Suspect]
     Active Substance: ROSIGLITAZONE MALEATE
     Indication: DIABETES MELLITUS
     Dosage: 04 MG, UNK
     Route: 048
     Dates: end: 20070722

REACTIONS (3)
  - Transient ischaemic attack [Unknown]
  - Carotid artery stenosis [Unknown]
  - Cerebrovascular accident [Unknown]
